FAERS Safety Report 12526517 (Version 3)
Quarter: 2016Q3

REPORT INFORMATION
  Report Type: Report from Study
  Country: BR (occurrence: BR)
  Receive Date: 20160705
  Receipt Date: 20160929
  Transmission Date: 20161109
  Serious: Yes (Hospitalization, Other)
  Sender: FDA-Public Use
  Company Number: PHHY2016BR090840

PATIENT
  Sex: Female
  Weight: 57 kg

DRUGS (3)
  1. EXJADE [Suspect]
     Active Substance: DEFERASIROX
     Indication: SICKLE CELL ANAEMIA
     Dosage: 20 MG/KG, 2 DF OF 500 MG AND 1 DF OF 250 MG, QHS
     Route: 048
     Dates: start: 201512, end: 201601
  2. ACIDO FOLICO//FOLIC ACID [Concomitant]
     Active Substance: FOLIC ACID
     Indication: SICKLE CELL ANAEMIA
     Dosage: 5 MG, QD
     Route: 048
  3. EXJADE [Suspect]
     Active Substance: DEFERASIROX
     Dosage: 20 MG/KG, 2 DF OF 500 MG AND 1 DF OF 250 MG, QHS
     Route: 048
     Dates: start: 201603

REACTIONS (5)
  - Urinary tract infection [Recovered/Resolved]
  - Arthralgia [Unknown]
  - Sickle cell anaemia with crisis [Recovered/Resolved]
  - Pain [Recovering/Resolving]
  - Serum ferritin increased [Recovering/Resolving]

NARRATIVE: CASE EVENT DATE: 2015
